FAERS Safety Report 20126743 (Version 1)
Quarter: 2021Q4

REPORT INFORMATION
  Report Type: Spontaneous
  Country: US (occurrence: None)
  Receive Date: 20211128
  Receipt Date: 20211128
  Transmission Date: 20220303
  Serious: Yes (Hospitalization)
  Sender: FDA-Public Use
  Company Number: None

PATIENT
  Age: 77 Year
  Sex: Female
  Weight: 68.4 kg

DRUGS (10)
  1. CASIRIVIMAB\IMDEVIMAB [Suspect]
     Active Substance: CASIRIVIMAB\IMDEVIMAB
     Indication: COVID-19
     Dosage: FREQUENCY : ONCE;?
     Route: 041
     Dates: start: 20211118, end: 20211118
  2. ASPIRIN [Concomitant]
     Active Substance: ASPIRIN
     Dates: start: 20020709
  3. ATORVASTATIN [Concomitant]
     Active Substance: ATORVASTATIN
     Dates: start: 20200518
  4. BIFIDOBACTERIUM INFANTIS [Concomitant]
     Dates: start: 20180510
  5. CHOLECALCIFEROL [Concomitant]
     Active Substance: CHOLECALCIFEROL
     Dates: start: 20080213
  6. CLOPIDOGREL [Concomitant]
     Active Substance: CLOPIDOGREL BISULFATE
     Dates: start: 20210522
  7. GLUCOSAMINE [Concomitant]
     Active Substance: GLUCOSAMINE
     Dates: start: 20060701
  8. levosynthroid [Concomitant]
     Dates: start: 20120523
  9. ONDANSETRON [Concomitant]
     Active Substance: ONDANSETRON
     Dates: start: 20150928
  10. PANTOPRAZOLE SODIUM [Concomitant]
     Active Substance: PANTOPRAZOLE SODIUM
     Dates: start: 20100416

REACTIONS (15)
  - Chest pain [None]
  - Chest discomfort [None]
  - Nausea [None]
  - Vomiting [None]
  - Rales [None]
  - Eating disorder [None]
  - Electrocardiogram T wave amplitude decreased [None]
  - Hypoxia [None]
  - C-reactive protein increased [None]
  - Blood lactate dehydrogenase increased [None]
  - Lung infiltration [None]
  - Hepatic enzyme increased [None]
  - Dyspnoea exertional [None]
  - Faeces discoloured [None]
  - Troponin abnormal [None]

NARRATIVE: CASE EVENT DATE: 20211121
